FAERS Safety Report 7149370-4 (Version None)
Quarter: 2010Q4

REPORT INFORMATION
  Report Type: 
  Country: None (occurrence: None)
  Receive Date: 20101209
  Receipt Date: 20100909
  Transmission Date: 20110411
  Serious: No
  Sender: FDA-Public Use
  Company Number: US-KINGPHARMUSA00001-K201001141

PATIENT
  Sex: Female
  Weight: 86.168 kg

DRUGS (4)
  1. EMBEDA [Suspect]
     Indication: BACK PAIN
     Dosage: 20 MG, BID
     Route: 048
     Dates: start: 20100730, end: 20100801
  2. EMBEDA [Suspect]
     Indication: SPINAL COMPRESSION FRACTURE
  3. PERCOCET [Concomitant]
  4. METFORMIN [Concomitant]
     Indication: DIABETES MELLITUS

REACTIONS (1)
  - SKIN ODOUR ABNORMAL [None]
